FAERS Safety Report 25288383 (Version 1)
Quarter: 2025Q2

REPORT INFORMATION
  Report Type: Spontaneous
  Country: US (occurrence: US)
  Receive Date: 20250509
  Receipt Date: 20250509
  Transmission Date: 20250716
  Serious: No
  Sender: BAYER HEALTHCARE LLC
  Company Number: US-BAYER-2025A062514

PATIENT
  Age: 11 Year
  Sex: Male

DRUGS (1)
  1. CLARITIN [Suspect]
     Active Substance: LORATADINE
     Indication: Prophylaxis
     Dosage: UNK
     Route: 048
     Dates: start: 20250506

REACTIONS (1)
  - Extra dose administered [Recovering/Resolving]

NARRATIVE: CASE EVENT DATE: 20250506
